FAERS Safety Report 9205179 (Version 3)
Quarter: 2013Q3

REPORT INFORMATION
  Report Type: Spontaneous
  Country: DK (occurrence: DK)
  Receive Date: 20130402
  Receipt Date: 20130903
  Transmission Date: 20140515
  Serious: Yes (Other)
  Sender: FDA-Public Use
  Company Number: PHHY2013DK030601

PATIENT
  Sex: Female

DRUGS (1)
  1. METHOTREXATE [Suspect]
     Indication: ACUTE LYMPHOCYTIC LEUKAEMIA

REACTIONS (2)
  - Optic neuropathy [Unknown]
  - Visual field defect [Unknown]
